FAERS Safety Report 15244845 (Version 1)
Quarter: 2018Q3

REPORT INFORMATION
  Report Type: Spontaneous
  Country: US (occurrence: US)
  Receive Date: 20180713
  Receipt Date: 20180713
  Transmission Date: 20181010
  Serious: Yes (Other)
  Sender: FDA-Public Use
  Company Number: None

PATIENT
  Age: 62 Year
  Sex: Female
  Weight: 126 kg

DRUGS (7)
  1. KLONIPIN [Concomitant]
     Active Substance: CLONAZEPAM
  2. ESTRADIAL [Concomitant]
  3. LISINAPRIL [Concomitant]
  4. ZOLPIDEM TARTRATE THIS IS THE BAD ONE ` [Suspect]
     Active Substance: ZOLPIDEM TARTRATE
     Indication: PRODUCT SUBSTITUTION ISSUE
     Dosage: ?          QUANTITY:1 TABLET(S);?
     Route: 048
  5. ZOLPIDEM 10MG...THIS IS GOOD ONE [Suspect]
     Active Substance: ZOLPIDEM TARTRATE
     Indication: PRODUCT USED FOR UNKNOWN INDICATION
     Route: 048
  6. ZOLPIDEM 10MG...THIS IS GOOD ONE [Suspect]
     Active Substance: ZOLPIDEM TARTRATE
     Indication: INSOMNIA
     Route: 048
  7. AMBIEN [Concomitant]
     Active Substance: ZOLPIDEM TARTRATE

REACTIONS (4)
  - Nightmare [None]
  - Panic attack [None]
  - Loss of personal independence in daily activities [None]
  - Product substitution issue [None]

NARRATIVE: CASE EVENT DATE: 20180617
